FAERS Safety Report 8979456 (Version 2)
Quarter: 2013Q1

REPORT INFORMATION
  Report Type: Report from Study
  Country: NL (occurrence: NL)
  Receive Date: 20121221
  Receipt Date: 20130213
  Transmission Date: 20140127
  Serious: Yes (Hospitalization)
  Sender: FDA-Public Use
  Company Number: NL-PFIZER INC-2012322327

PATIENT
  Age: 68 Year
  Sex: Female
  Weight: 72.2 kg

DRUGS (19)
  1. SIROLIMUS [Suspect]
     Indication: IMMUNOSUPPRESSION
     Dosage: 4 MG, UNK
     Dates: start: 20120703, end: 20120723
  2. BLINDED THERAPY [Suspect]
     Indication: RENAL TRANSPLANT
     Dosage: UNK
     Route: 042
     Dates: start: 20120322
  3. MYCOPHENOLATE MOFETIL [Concomitant]
     Dosage: 1500 MG, UNK
     Dates: start: 20120322
  4. PREDNISONE [Concomitant]
     Dosage: 10 MG, UNK
     Dates: start: 20120322
  5. CO-TRIMOXAZOLE [Concomitant]
     Dosage: 480 MG, UNK
     Dates: start: 20120405
  6. ATENOLOL [Concomitant]
     Dosage: 50 MG, UNK
     Dates: start: 20120328
  7. FUROSEMIDE [Concomitant]
     Dosage: 80 MG, UNK
     Dates: start: 20120328
  8. FUROSEMIDE [Concomitant]
     Dosage: 40 MG, UNK
     Dates: start: 20120725
  9. BUDESONIDE/FORMOTEROL FUMARATE [Concomitant]
     Dosage: 800 UG, UNK
     Dates: start: 20120321
  10. GLICLAZIDE [Concomitant]
     Dosage: 80 MG, UNK
     Dates: start: 20120501
  11. IRBESARTAN [Concomitant]
     Dosage: 150 MG, UNK
     Dates: start: 20120501
  12. LEVOTHYROXINE SODIUM [Concomitant]
     Dosage: 100 UG, UNK
     Dates: start: 20120321
  13. NIFEDIPINE [Concomitant]
     Dosage: 30 MG, UNK
     Dates: start: 20120321
  14. PANTOPRAZOL [Concomitant]
     Dosage: 40 MG, UNK
     Dates: start: 20120321
  15. PRAVASTATIN [Concomitant]
     Dosage: 20 MG, UNK
     Dates: start: 20120321
  16. TERBUTALINE SULFATE [Concomitant]
     Dosage: 2 MG, UNK
     Dates: start: 20120321
  17. TIOTROPIUM BROMIDE [Concomitant]
     Dosage: 18 UG, UNK
     Dates: start: 20120321
  18. IPRATROPIUM BROMIDE/SALBUTAMOL [Concomitant]
     Dosage: 18 UG, UNK
     Dates: start: 20120322
  19. IPRATROPIUM BROMIDE/SALBUTAMOL [Concomitant]
     Dosage: VARIABLE
     Dates: start: 20120723

REACTIONS (3)
  - Dyspnoea [Recovered/Resolved]
  - Ureteric stenosis [Recovered/Resolved]
  - Pyrexia [Recovered/Resolved]
